FAERS Safety Report 24862531 (Version 4)
Quarter: 2025Q4

REPORT INFORMATION
  Report Type: Spontaneous
  Country: US (occurrence: US)
  Receive Date: 20250120
  Receipt Date: 20251124
  Transmission Date: 20260118
  Serious: No
  Sender: MERCK SHARP & DOHME LLC
  Company Number: US-009507513-2501USA004633

PATIENT
  Sex: Female
  Weight: 79.4 kg

DRUGS (25)
  1. WINREVAIR [Suspect]
     Active Substance: SOTATERCEPT-CSRK
     Indication: Product used for unknown indication
  2. WINREVAIR [Suspect]
     Active Substance: SOTATERCEPT-CSRK
  3. WINREVAIR [Suspect]
     Active Substance: SOTATERCEPT-CSRK
  4. WINREVAIR [Suspect]
     Active Substance: SOTATERCEPT-CSRK
  5. REMODULIN [Suspect]
     Active Substance: TREPROSTINIL
     Indication: Pulmonary arterial hypertension
     Dosage: DOSE DESCRIPTION : 0.094  G/KG, CONTINUOUS VIA IV DRIP?CONCENTRATION: 5 MG/ML
     Route: 041
  6. REMODULIN [Suspect]
     Active Substance: TREPROSTINIL
     Indication: Pulmonary arterial hypertension
     Dosage: UNK, CONTINUING, IV DRIP, CONCENTRATION: 5 MG/ML
     Route: 041
     Dates: start: 20240223
  7. ADEMPAS [Concomitant]
     Active Substance: RIOCIGUAT
  8. ZOLOFT [Concomitant]
     Active Substance: SERTRALINE HYDROCHLORIDE
  9. CHILDREN^S ALLEGRA HIVES/ALLEGRA [Concomitant]
  10. PEPCID [Concomitant]
     Active Substance: FAMOTIDINE
  11. OPSUMIT [Concomitant]
     Active Substance: MACITENTAN
  12. PANTOPRAZOLE SODIUM [PANTOPRAZOLE SODIUM] [Concomitant]
  13. ELIQUIS [Concomitant]
     Active Substance: APIXABAN
  14. METOLAZONE [Concomitant]
     Active Substance: METOLAZONE
     Indication: Fluid retention
  15. POTASSIUM CHLORIDE [Concomitant]
     Active Substance: POTASSIUM CHLORIDE
  16. TOPIRAMATE [Concomitant]
     Active Substance: TOPIRAMATE
  17. BIOTIN [Concomitant]
     Active Substance: BIOTIN
  18. XANAX [Concomitant]
     Active Substance: ALPRAZOLAM
  19. VITAMIN B12 [Concomitant]
     Active Substance: CYANOCOBALAMIN
  20. SPIRONOLACTONE [Concomitant]
     Active Substance: SPIRONOLACTONE
  21. TORSEMIDE [Concomitant]
     Active Substance: TORSEMIDE
  22. ONDANSETRON HYDROCHLORIDE [Concomitant]
     Active Substance: ONDANSETRON HYDROCHLORIDE
  23. UBRELVY [Concomitant]
     Active Substance: UBROGEPANT
  24. SODIUM SULFACETAMIDE AND SULFUR [Concomitant]
     Active Substance: SULFACETAMIDE SODIUM\SULFUR
  25. PIMECROLIMUS [Concomitant]
     Active Substance: PIMECROLIMUS

REACTIONS (3)
  - Weight increased [Unknown]
  - Platelet count decreased [Unknown]
  - Lethargy [Unknown]
